FAERS Safety Report 4444801-2 (Version None)
Quarter: 2004Q3

REPORT INFORMATION
  Report Type: 
  Country: None (occurrence: None)
  Receive Date: 20040907
  Receipt Date: 20040907
  Transmission Date: 20050211
  Serious: Yes (Life-Threatening, Hospitalization, Disabling, Other)
  Sender: FDA-Public Use
  Company Number: None

PATIENT
  Age: 75 Year
  Sex: Female
  Weight: 95.2554 kg

DRUGS (1)
  1. ARIMIDEX [Suspect]
     Indication: BONE NEOPLASM MALIGNANT
     Dosage: 1 MG TAB DAILY
     Dates: start: 20040301, end: 20040410

REACTIONS (9)
  - ABASIA [None]
  - ASTHENIA [None]
  - CHILLS [None]
  - DYSSTASIA [None]
  - FATIGUE [None]
  - FEELING COLD [None]
  - GENERAL PHYSICAL HEALTH DETERIORATION [None]
  - PAIN [None]
  - PAIN OF SKIN [None]
